FAERS Safety Report 8419032-1 (Version None)
Quarter: 2012Q2

REPORT INFORMATION
  Report Type: 
  Country: None (occurrence: None)
  Receive Date: 20120607
  Receipt Date: 20120604
  Transmission Date: 20120825
  Serious: Yes (Hospitalization)
  Sender: FDA-Public Use
  Company Number: PHHY2012BR048241

PATIENT
  Sex: Female

DRUGS (2)
  1. EXFORGE HCT [Suspect]
     Indication: HYPERTENSION
     Dosage: 1 TABLET A DAY
     Route: 048
  2. NEXIUM [Concomitant]
     Indication: PROPHYLAXIS
     Dosage: UNK

REACTIONS (8)
  - POLLAKIURIA [None]
  - VERTIGO [None]
  - SYNCOPE [None]
  - TRANSIENT ISCHAEMIC ATTACK [None]
  - BONE FISSURE [None]
  - BLOOD GLUCOSE INCREASED [None]
  - FALL [None]
  - BLOOD SODIUM DECREASED [None]
